FAERS Safety Report 9316547 (Version 3)
Quarter: 2013Q3

REPORT INFORMATION
  Report Type: Spontaneous
  Country: US (occurrence: US)
  Receive Date: 20130530
  Receipt Date: 20130917
  Transmission Date: 20140515
  Serious: No
  Sender: FDA-Public Use
  Company Number: US-PFIZER INC-2013164621

PATIENT
  Age: 61 Year
  Sex: Female
  Weight: 113 kg

DRUGS (19)
  1. CELEBREX [Suspect]
     Indication: RHEUMATOID ARTHRITIS
     Dosage: 350 MG, DAILY
     Dates: start: 2008
  2. CELEBREX [Suspect]
     Dosage: UNK, 1X/DAY
  3. LYRICA [Suspect]
     Indication: FIBROMYALGIA
     Dosage: 25 MG, 2X/DAY
     Route: 048
     Dates: start: 2011, end: 201305
  4. LYRICA [Suspect]
     Indication: NEUROPATHY PERIPHERAL
     Dosage: 75 MG, 2X/DAY
     Route: 048
  5. LYRICA [Suspect]
     Dosage: 50 MG, 3X/DAY
     Route: 048
     Dates: start: 201308
  6. EFFEXOR XR [Suspect]
     Indication: DEPRESSION
     Dosage: 25 MG, 2X/DAY
     Route: 048
  7. EFFEXOR XR [Suspect]
     Dosage: 75 MG, 2X/DAY
     Route: 048
  8. CALCIUM [Concomitant]
     Indication: PARATHYROID DISORDER
     Dosage: 600 MG, DAILY
     Dates: start: 2008
  9. ADVAIR HFA [Concomitant]
     Indication: CHRONIC OBSTRUCTIVE PULMONARY DISEASE
     Dosage: UNK (STRENGTH: 500/50MCG), 2X/DAY
     Dates: start: 2008
  10. ADVAIR HFA [Concomitant]
     Indication: PARATHYROID DISORDER
  11. SPIRIVA [Concomitant]
     Indication: CHRONIC OBSTRUCTIVE PULMONARY DISEASE
     Dosage: UNK, DAILY
     Dates: start: 2008
  12. PROVENTIL HFA [Concomitant]
     Indication: CHRONIC OBSTRUCTIVE PULMONARY DISEASE
     Dosage: UNK
  13. CIMZIA [Concomitant]
     Indication: RHEUMATOID ARTHRITIS
     Dosage: UNK
     Dates: start: 2008
  14. LASIX [Concomitant]
     Indication: HYPERTENSION
     Dosage: 40 MG, UNK
     Dates: start: 2008
  15. HYDROCHLOROTHIAZIDE [Concomitant]
     Indication: HYPERTENSION
     Dosage: 25 MG, UNK
  16. DIOVAN [Concomitant]
     Indication: HYPERTENSION
     Dosage: 320 MG, 2X/DAY
     Dates: start: 2008
  17. TOPROL XL [Concomitant]
     Indication: HYPERTENSION
     Dosage: UNK, 2X/DAY
     Dates: start: 201305
  18. AGGRENOX [Concomitant]
     Indication: CARDIAC FAILURE CONGESTIVE
     Dosage: 200/25MG, 2X/DAY
  19. AGGRENOX [Concomitant]
     Indication: ANTICOAGULANT THERAPY

REACTIONS (4)
  - Hypoaesthesia [Not Recovered/Not Resolved]
  - Paraesthesia [Not Recovered/Not Resolved]
  - Somnolence [Unknown]
  - Dry mouth [Not Recovered/Not Resolved]
